FAERS Safety Report 21345068 (Version 1)
Quarter: 2022Q3

REPORT INFORMATION
  Report Type: Spontaneous
  Country: US (occurrence: US)
  Receive Date: 20220916
  Receipt Date: 20220916
  Transmission Date: 20221026
  Serious: No
  Sender: FDA-Public Use
  Company Number: US-REGENERON PHARMACEUTICALS, INC.-2022-059736

PATIENT
  Sex: Female

DRUGS (1)
  1. PRALUENT [Suspect]
     Active Substance: ALIROCUMAB
     Indication: Hypercholesterolaemia
     Dosage: 75 MG, Q2W
     Route: 058

REACTIONS (7)
  - Illness [Unknown]
  - Hepatic pain [Unknown]
  - Renal pain [Unknown]
  - Abdominal pain upper [Unknown]
  - Vomiting [Unknown]
  - Flatulence [Unknown]
  - Product temperature excursion issue [Unknown]
